FAERS Safety Report 5464445-3 (Version None)
Quarter: 2007Q3

REPORT INFORMATION
  Report Type: 
  Country: None (occurrence: None)
  Receive Date: 20070921
  Receipt Date: 20070910
  Transmission Date: 20080115
  Serious: Yes (Hospitalization)
  Sender: FDA-Public Use
  Company Number: US-ELI_LILLY_AND_COMPANY-US200606002484

PATIENT
  Age: 52 Year
  Sex: Male
  Weight: 85.714 kg

DRUGS (11)
  1. ZYPREXA [Suspect]
     Indication: PSYCHOTIC DISORDER
     Dosage: 10 MG, 2/D
     Route: 048
     Dates: start: 20010517, end: 20051112
  2. RISPERIDONE [Concomitant]
     Dates: start: 20030101
  3. LITHIUM [Concomitant]
     Dates: start: 20030101
  4. DIVALPROEX SODIUM [Concomitant]
     Dates: start: 20030101
  5. BENZTROPINE MESYLATE [Concomitant]
     Dates: start: 20010101
  6. LORAZEPAM [Concomitant]
     Dates: start: 20010101
  7. TRAZODONE HCL [Concomitant]
     Dates: start: 20010101
  8. AMANTADINE HCL [Concomitant]
     Dates: start: 20010101
  9. DIAZEPAM [Concomitant]
     Dates: start: 20030101
  10. MIRTAZAPINE [Concomitant]
     Dates: start: 20050101
  11. AMITRIPTYLINE HCL [Concomitant]
     Dates: start: 20050101

REACTIONS (19)
  - BAND NEUTROPHIL COUNT INCREASED [None]
  - BLOOD AMYLASE INCREASED [None]
  - BLOOD TRIGLYCERIDES INCREASED [None]
  - DEEP VEIN THROMBOSIS [None]
  - DIABETIC COMA [None]
  - DIABETIC HYPEROSMOLAR COMA [None]
  - DIABETIC KETOACIDOSIS [None]
  - HYPERGLYCAEMIC HYPEROSMOLAR NONKETOTIC SYNDROME [None]
  - HYPERTENSION [None]
  - INFECTION [None]
  - LIPASE INCREASED [None]
  - METABOLIC DISORDER [None]
  - OBESITY [None]
  - PANCREATITIS [None]
  - RENAL FAILURE [None]
  - THROMBOCYTOPENIA [None]
  - TYPE 1 DIABETES MELLITUS [None]
  - VISION BLURRED [None]
  - WEIGHT DECREASED [None]
